FAERS Safety Report 4340704-2 (Version None)
Quarter: 2004Q2

REPORT INFORMATION
  Report Type: 
  Country: None (occurrence: None)
  Receive Date: 20040414
  Receipt Date: 20040402
  Transmission Date: 20050107
  Serious: Yes (Death)
  Sender: FDA-Public Use
  Company Number: 04-0026-PO

PATIENT
  Age: 9 Week
  Sex: Male

DRUGS (3)
  1. PONSTEL [Suspect]
     Dosage: PO
     Route: 048
  2. TETRACYCLINE [Suspect]
  3. LITHIUM [Concomitant]

REACTIONS (2)
  - DRUG EXPOSURE DURING PREGNANCY [None]
  - HEART DISEASE CONGENITAL [None]
